FAERS Safety Report 10185130 (Version 1)
Quarter: 2014Q2

REPORT INFORMATION
  Report Type: Spontaneous
  Country: US (occurrence: None)
  Receive Date: 20140520
  Receipt Date: 20140520
  Transmission Date: 20141212
  Serious: Yes (Disabling, Other)
  Sender: FDA-Public Use
  Company Number: None

PATIENT
  Age: 35 Year
  Sex: Male
  Weight: 90.72 kg

DRUGS (1)
  1. CIPROFLOXACIN 500MG [Suspect]
     Indication: URINARY TRACT DISORDER
     Dosage: 1PILLX 2 A DAY TWICE DAILY
     Route: 048
     Dates: start: 20130710, end: 20130717

REACTIONS (5)
  - Fatigue [None]
  - Depression [None]
  - Irritability [None]
  - Tremor [None]
  - Muscle twitching [None]
